FAERS Safety Report 9123443 (Version 1)
Quarter: 2013Q1

REPORT INFORMATION
  Report Type: Spontaneous
  Country: BR (occurrence: BR)
  Receive Date: 20130114
  Receipt Date: 20130114
  Transmission Date: 20140127
  Serious: Yes (Other)
  Sender: FDA-Public Use
  Company Number: BR-ASTRAZENECA-2013SE02199

PATIENT
  Age: 78 Year
  Sex: Female
  Weight: 72 kg

DRUGS (4)
  1. CUBICIN [Suspect]
     Route: 042
     Dates: start: 20111105, end: 201111
  2. NEXIUM [Suspect]
     Route: 048
     Dates: start: 20111105, end: 201111
  3. MERONEM [Suspect]
     Route: 042
     Dates: start: 20111105, end: 201111
  4. LEVAQUIN [Suspect]
     Route: 042
     Dates: start: 20111105, end: 201111

REACTIONS (1)
  - Phlebitis [Recovered/Resolved]
